FAERS Safety Report 10964258 (Version 2)
Quarter: 2015Q2

REPORT INFORMATION
  Report Type: Spontaneous
  Country: US (occurrence: US)
  Receive Date: 20150329
  Receipt Date: 20150524
  Transmission Date: 20150821
  Serious: No
  Sender: FDA-Public Use
  Company Number: US-JNJFOC-20110912240

PATIENT
  Age: 49 Year
  Sex: Female
  Weight: 74.84 kg

DRUGS (7)
  1. DURAGESIC [Suspect]
     Active Substance: FENTANYL
     Indication: PAIN
     Dosage: NDC 50458-093-05
     Route: 062
     Dates: start: 2009, end: 2013
  2. UNSPECIFIED GENERIC FENTANYL [Suspect]
     Active Substance: FENTANYL
     Indication: PAIN
     Dosage: NDC 50458-093-05
     Route: 062
     Dates: start: 2012, end: 2012
  3. DURAGESIC [Suspect]
     Active Substance: FENTANYL
     Indication: PAIN
     Route: 062
     Dates: end: 2009
  4. DURAGESIC [Suspect]
     Active Substance: FENTANYL
     Indication: COMPLEX REGIONAL PAIN SYNDROME
     Dosage: NDC 50458-093-05
     Route: 062
     Dates: start: 2009, end: 2013
  5. DURAGESIC [Suspect]
     Active Substance: FENTANYL
     Indication: COMPLEX REGIONAL PAIN SYNDROME
     Route: 062
     Dates: end: 2009
  6. UNKNOWN MEDICATION [Concomitant]
     Active Substance: UNSPECIFIED INGREDIENT
     Route: 065
  7. UNSPECIFIED GENERIC FENTANYL [Suspect]
     Active Substance: FENTANYL
     Indication: COMPLEX REGIONAL PAIN SYNDROME
     Dosage: NDC 50458-093-05
     Route: 062
     Dates: start: 2012, end: 2012

REACTIONS (6)
  - Headache [Recovered/Resolved]
  - Application site erosion [Recovered/Resolved]
  - Hypersensitivity [Recovered/Resolved]
  - Product adhesion issue [Recovered/Resolved]
  - Nasal disorder [Recovered/Resolved]
  - Tooth infection [Not Recovered/Not Resolved]

NARRATIVE: CASE EVENT DATE: 201108
